FAERS Safety Report 4833087-2 (Version None)
Quarter: 2005Q4

REPORT INFORMATION
  Report Type: 
  Country: None (occurrence: None)
  Receive Date: 20051117
  Receipt Date: 20051104
  Transmission Date: 20060501
  Serious: Yes (Other)
  Sender: FDA-Public Use
  Company Number: 2005155189

PATIENT
  Age: 24 Year
  Sex: Male

DRUGS (4)
  1. TESTOSTERONE CYPIONATE [Suspect]
     Indication: OFF LABEL USE
  2. METHANDROSTENOLONE [Suspect]
     Indication: OFF LABEL USE
     Dosage: 15 MG, DAILY
  3. OXANDROLONE [Suspect]
     Indication: OFF LABEL USE
     Dosage: 25 MG
  4. STANOZOLOL [Suspect]
     Indication: OFF LABEL USE
     Dosage: 10 MG DAILY

REACTIONS (11)
  - ABNORMAL BEHAVIOUR [None]
  - DISTURBANCE IN ATTENTION [None]
  - INTENTIONAL DRUG MISUSE [None]
  - IRRITABILITY [None]
  - MAJOR DEPRESSION [None]
  - MANIA [None]
  - MOOD DISORDER DUE TO A GENERAL MEDICAL CONDITION [None]
  - OBSESSIVE-COMPULSIVE DISORDER [None]
  - PSYCHIATRIC SYMPTOM [None]
  - SUICIDAL IDEATION [None]
  - THINKING ABNORMAL [None]
